FAERS Safety Report 8607814 (Version 3)
Quarter: 2013Q4

REPORT INFORMATION
  Report Type: Spontaneous
  Country: US (occurrence: US)
  Receive Date: 20120611
  Receipt Date: 20131129
  Transmission Date: 20140711
  Serious: Yes (Hospitalization)
  Sender: FDA-Public Use
  Company Number: US-ASTRAZENECA-2012SE35271

PATIENT
  Age: 20445 Day
  Sex: Male

DRUGS (3)
  1. NEXIUM [Suspect]
     Indication: GASTROOESOPHAGEAL REFLUX DISEASE
     Route: 048
     Dates: start: 20060601, end: 2010
  2. NEXIUM [Suspect]
     Indication: GASTROOESOPHAGEAL REFLUX DISEASE
     Route: 048
     Dates: start: 20061117
  3. ZANTAC [Concomitant]
     Dosage: ONE TABLET TWICE A DAY
     Dates: start: 20100205

REACTIONS (13)
  - Back pain [Unknown]
  - Musculoskeletal pain [Unknown]
  - Osteoporosis [Unknown]
  - Multiple fractures [Unknown]
  - Upper limb fracture [Unknown]
  - Bone pain [Unknown]
  - Arthritis [Unknown]
  - Vitamin D deficiency [Unknown]
  - Spinal osteoarthritis [Unknown]
  - Muscle strain [Unknown]
  - Rotator cuff syndrome [Unknown]
  - Osteoarthritis [Unknown]
  - Arthralgia [Unknown]
